FAERS Safety Report 10693153 (Version 4)
Quarter: 2015Q1

REPORT INFORMATION
  Report Type: Report from Study
  Country: CO (occurrence: CO)
  Receive Date: 20150106
  Receipt Date: 20150317
  Transmission Date: 20150720
  Serious: Yes (Disabling, Other)
  Sender: FDA-Public Use
  Company Number: CO-EMD SERONO-8004070

PATIENT
  Age: 30 Year
  Sex: Male
  Weight: 70 kg

DRUGS (1)
  1. REBIF [Suspect]
     Active Substance: INTERFERON BETA-1A
     Indication: MULTIPLE SCLEROSIS
     Route: 058
     Dates: start: 20141229

REACTIONS (19)
  - Hypothermia [Recovered/Resolved]
  - Delirium [Recovered/Resolved]
  - Headache [Recovered/Resolved]
  - Spinal pain [Unknown]
  - Pain in extremity [Unknown]
  - Arthralgia [Recovered/Resolved]
  - Swelling [Recovered/Resolved]
  - Chills [Recovered/Resolved]
  - Back pain [Unknown]
  - Weight decreased [Unknown]
  - Hypoaesthesia [Unknown]
  - Loss of consciousness [Recovered/Resolved]
  - Seizure [Recovered/Resolved]
  - Alopecia [Unknown]
  - Pain [Recovered/Resolved]
  - Pyrexia [Recovered/Resolved]
  - Epistaxis [Recovered/Resolved]
  - Peripheral swelling [Recovered/Resolved]
  - Abscess [Unknown]

NARRATIVE: CASE EVENT DATE: 20141229
